FAERS Safety Report 9563405 (Version 1)
Quarter: 2013Q3

REPORT INFORMATION
  Report Type: Spontaneous
  Country: US (occurrence: None)
  Receive Date: 20130926
  Receipt Date: 20130926
  Transmission Date: 20140515
  Serious: Yes (Hospitalization)
  Sender: FDA-Public Use
  Company Number: None

PATIENT
  Age: 66 Year
  Sex: Male
  Weight: 58.1 kg

DRUGS (1)
  1. ANAGRELIDE [Suspect]
     Indication: THROMBOCYTOSIS
     Route: 048

REACTIONS (3)
  - Rectal haemorrhage [None]
  - Red blood cell count decreased [None]
  - Thrombocytopenia [None]
